FAERS Safety Report 9457540 (Version 1)
Quarter: 2013Q3

REPORT INFORMATION
  Report Type: Spontaneous
  Country: US (occurrence: None)
  Receive Date: 20130812
  Receipt Date: 20130812
  Transmission Date: 20140515
  Serious: Yes (Life-Threatening, Hospitalization)
  Sender: FDA-Public Use
  Company Number: None

PATIENT
  Age: 51 Year
  Sex: Female
  Weight: 129.28 kg

DRUGS (1)
  1. DEPO-PROVERA [Suspect]
     Indication: OVARIAN DISORDER
     Dosage: INJECTION GIVEN INTO/UNDER THE SKIN
     Route: 058
     Dates: start: 20130610

REACTIONS (3)
  - Hypersensitivity [None]
  - Mass [None]
  - Erythema [None]
